FAERS Safety Report 16440957 (Version 3)
Quarter: 2019Q3

REPORT INFORMATION
  Report Type: Spontaneous
  Country: US (occurrence: US)
  Receive Date: 20190617
  Receipt Date: 20190725
  Transmission Date: 20191004
  Serious: No
  Sender: FDA-Public Use
  Company Number: PHEH2019US025359

PATIENT
  Age: 31 Year
  Sex: Male

DRUGS (3)
  1. TREPROSTINIL. [Suspect]
     Active Substance: TREPROSTINIL
     Dosage: 115 OT, CONT (UNITS NG/KG/MIN)
     Route: 042
     Dates: start: 20190618
  2. TREPROSTINIL. [Suspect]
     Active Substance: TREPROSTINIL
     Dosage: 11 OT, CONT (UNITS NG/KG/MIN)
     Route: 042
     Dates: start: 20190530
  3. TREPROSTINIL. [Suspect]
     Active Substance: TREPROSTINIL
     Indication: PULMONARY ARTERIAL HYPERTENSION
     Dosage: 10 OT, CONT (UNITS NG/KG/MIN)
     Route: 042
     Dates: start: 20190529

REACTIONS (5)
  - Diarrhoea [Unknown]
  - Dyspepsia [Unknown]
  - Pain in extremity [Unknown]
  - Headache [Unknown]
  - Varicose vein [Unknown]

NARRATIVE: CASE EVENT DATE: 201906
